FAERS Safety Report 5892678-0 (Version None)
Quarter: 2008Q3

REPORT INFORMATION
  Report Type: 
  Country: None (occurrence: None)
  Receive Date: 20080919
  Receipt Date: 20080919
  Transmission Date: 20090109
  Serious: Yes (Hospitalization)
  Sender: FDA-Public Use
  Company Number: None

PATIENT
  Sex: Male
  Weight: 87.6 kg

DRUGS (19)
  1. ABILIFY [Suspect]
     Indication: DEMENTIA
     Dosage: AS ABOVE
     Dates: start: 20080729, end: 20080811
  2. ABILIFY [Suspect]
     Indication: PSYCHOTIC DISORDER
     Dosage: AS ABOVE
     Dates: start: 20080729, end: 20080811
  3. ABILIFY [Suspect]
     Dosage: AS ABOVE
     Dates: start: 20080812, end: 20080825
  4. ASPIRIN [Concomitant]
  5. BENAZPRIL [Concomitant]
  6. NITROGLYCERIN [Concomitant]
  7. BISACODYL [Concomitant]
  8. FINASTERIDE [Concomitant]
  9. MOTRIN [Concomitant]
  10. HALDOL [Concomitant]
  11. OLSALAZINE [Concomitant]
  12. PRILOSEC [Concomitant]
  13. VANCOMYCIN HYDROCHLORIDE [Concomitant]
  14. NORTRIPTYLINE HCL [Concomitant]
  15. TERAZOSIN HCL [Concomitant]
  16. RIFAMPIN [Concomitant]
  17. TRAMADOL HCL [Concomitant]
  18. ZOCOR [Concomitant]
  19. METOPROLOL [Concomitant]

REACTIONS (4)
  - BLOOD URINE PRESENT [None]
  - OSTEOMYELITIS BACTERIAL [None]
  - STAPHYLOCOCCAL INFECTION [None]
  - URINARY TRACT INFECTION STAPHYLOCOCCAL [None]
